FAERS Safety Report 20007855 (Version 1)
Quarter: 2021Q4

REPORT INFORMATION
  Report Type: Other
  Country: GB (occurrence: GB)
  Receive Date: 20211028
  Receipt Date: 20211028
  Transmission Date: 20220303
  Serious: Yes (Life-Threatening, Hospitalization, Other)
  Sender: FDA-Public Use
  Company Number: None

PATIENT
  Age: 62 Year
  Sex: Female
  Weight: 56 kg

DRUGS (9)
  1. OMEPRAZOLE [Suspect]
     Active Substance: OMEPRAZOLE
     Indication: Duodenal ulcer
  2. OMEPRAZOLE [Suspect]
     Active Substance: OMEPRAZOLE
     Indication: Product used for unknown indication
  3. AMLODIPINE [Suspect]
     Active Substance: AMLODIPINE BESYLATE
     Indication: Product used for unknown indication
     Dosage: 1 TABLET ONCE A DAY; ;
     Dates: start: 20210729, end: 20210831
  4. AMLODIPINE [Suspect]
     Active Substance: AMLODIPINE BESYLATE
     Dosage: 1 TABLET ONCE A DAY,UNK; ;
     Dates: start: 20210831
  5. CODEINE [Suspect]
     Active Substance: CODEINE
     Indication: Product used for unknown indication
     Dosage: 1 TO 2 TABLETS FOUR TIMES DAILY WHEN REQUIRED,UNK; ;
     Dates: start: 20210729, end: 20210831
  6. CODEINE [Suspect]
     Active Substance: CODEINE
     Dosage: 1 TO 2 TABLETS FOUR TIMES DAILY WHEN REQUIRED,UNK; ;
     Dates: start: 20210831
  7. PERINDOPRIL ERBUMINE [Suspect]
     Active Substance: PERINDOPRIL ERBUMINE
     Indication: Product used for unknown indication
     Dosage: 1 TABLET ONCE A DAY,UNK; ;
     Dates: start: 20210831
  8. PERINDOPRIL ERBUMINE [Suspect]
     Active Substance: PERINDOPRIL ERBUMINE
     Dosage: 1 TABLET ONCE A DAY; ;
     Dates: start: 20210729, end: 20210831
  9. EZETIMIBE [Concomitant]
     Active Substance: EZETIMIBE
     Indication: Product used for unknown indication
     Dosage: 1 TABLET ONCE A DAY; ;
     Dates: start: 20210729, end: 20210831

REACTIONS (4)
  - Syncope [Unknown]
  - Hypomagnesaemia [Recovering/Resolving]
  - Humerus fracture [Unknown]
  - Hypocalcaemia [Recovering/Resolving]

NARRATIVE: CASE EVENT DATE: 20210830
